FAERS Safety Report 4591719-0 (Version None)
Quarter: 2005Q1

REPORT INFORMATION
  Report Type: 
  Country: None (occurrence: None)
  Receive Date: 20050223
  Receipt Date: 20050223
  Transmission Date: 20050727
  Serious: No
  Sender: FDA-Public Use
  Company Number: None

PATIENT
  Age: 65 Year

DRUGS (1)
  1. SPIRONOLACTONE [Suspect]
     Indication: OEDEMA PERIPHERAL

REACTIONS (1)
  - NO ADVERSE EFFECT [None]
